FAERS Safety Report 20947754 (Version 1)
Quarter: 2022Q2

REPORT INFORMATION
  Report Type: Report from Study
  Country: IT (occurrence: IT)
  Receive Date: 20220611
  Receipt Date: 20220611
  Transmission Date: 20220720
  Serious: Yes (Other)
  Sender: FDA-Public Use
  Company Number: None

PATIENT
  Age: 83 Year
  Sex: Female

DRUGS (7)
  1. NEBIVOLOL [Suspect]
     Active Substance: NEBIVOLOL
     Dosage: UNIT DOSE : 5 MG , FREQUENCY TIME : 1 DAY , DURATION : 92 DAYS
     Dates: start: 20220101, end: 20220403
  2. HALCION [Concomitant]
     Active Substance: TRIAZOLAM
  3. PALEXIA [Concomitant]
     Active Substance: TAPENTADOL HYDROCHLORIDE
     Dosage: UNIT DOSE : 100 MG
  4. RAMIPRIL [Concomitant]
     Active Substance: RAMIPRIL
  5. PANTOPRAZOLE [Concomitant]
     Active Substance: PANTOPRAZOLE
     Dosage: UNIT DOSE : 40 MG
  6. ETORICOXIB [Concomitant]
     Active Substance: ETORICOXIB
     Dosage: STRENGTH :60 MG
  7. CETIRIZINE [Concomitant]
     Active Substance: CETIRIZINE HYDROCHLORIDE
     Dosage: UNIT DOSE : 10 MG

REACTIONS (1)
  - Sinus bradycardia [Recovering/Resolving]

NARRATIVE: CASE EVENT DATE: 20220403
